FAERS Safety Report 8016180-5 (Version None)
Quarter: 2011Q4

REPORT INFORMATION
  Report Type: 
  Country: None (occurrence: None)
  Receive Date: 20111230
  Receipt Date: 20111222
  Transmission Date: 20120403
  Serious: Yes (Life-Threatening, Hospitalization)
  Sender: FDA-Public Use
  Company Number: US-ACTELION-A-NJ2011-58694

PATIENT

DRUGS (3)
  1. TRACLEER [Suspect]
     Indication: PULMONARY ARTERIAL HYPERTENSION
     Dosage: UNK
     Route: 048
     Dates: start: 20110824
  2. REMODULIN [Concomitant]
  3. SILDENAFIL [Concomitant]

REACTIONS (3)
  - PULMONARY ARTERIAL HYPERTENSION [None]
  - HYPERTENSION [None]
  - CONDITION AGGRAVATED [None]
